FAERS Safety Report 16159241 (Version 3)
Quarter: 2021Q1

REPORT INFORMATION
  Report Type: Report from Study
  Country: US (occurrence: US)
  Receive Date: 20190404
  Receipt Date: 20210317
  Transmission Date: 20210419
  Serious: Yes (Hospitalization)
  Sender: FDA-Public Use
  Company Number: US-PFIZER INC-2019138446

PATIENT
  Age: 59 Year
  Sex: Male
  Weight: 73.47 kg

DRUGS (4)
  1. CYTARABINE. [Suspect]
     Active Substance: CYTARABINE
     Indication: ACUTE MYELOID LEUKAEMIA
     Dosage: 5580 MG, OVER 3 HOURS TWICE DAILY ON DAYS 1, 3, 5, CONSOLIDATION CYCLE 3
     Route: 042
     Dates: start: 20190307, end: 20190312
  2. GLASDEGIB [Suspect]
     Active Substance: GLASDEGIB
     Indication: ACUTE MYELOID LEUKAEMIA
     Dosage: ONCE DAILY CONTINUOUS
     Route: 048
     Dates: start: 20181024
  3. CYTARABINE. [Suspect]
     Active Substance: CYTARABINE
     Indication: ACUTE MYELOID LEUKAEMIA
     Dosage: 191 MG, DAILY BY CONTINUOUS INFUSION
     Route: 041
     Dates: start: 20181024, end: 20181030
  4. DAUNORUBICIN [Suspect]
     Active Substance: DAUNORUBICIN
     Indication: ACUTE MYELOID LEUKAEMIA
     Dosage: 115 MG, DAILY BY CONTINUOUS INFUSION
     Route: 041
     Dates: start: 20181024, end: 20181026

REACTIONS (1)
  - Febrile neutropenia [Recovered/Resolved]

NARRATIVE: CASE EVENT DATE: 20190327
